FAERS Safety Report 5585703-8 (Version None)
Quarter: 2008Q1

REPORT INFORMATION
  Report Type: 
  Country: None (occurrence: None)
  Receive Date: 20080109
  Receipt Date: 20080104
  Transmission Date: 20080703
  Serious: Yes (Other)
  Sender: FDA-Public Use
  Company Number: US-JNJFOC-20080101187

PATIENT
  Age: 39 Year
  Sex: Female
  Weight: 62.14 kg

DRUGS (2)
  1. TOPAMAX [Suspect]
     Route: 048
  2. TOPAMAX [Suspect]
     Indication: MIGRAINE PROPHYLAXIS
     Route: 048

REACTIONS (11)
  - COLITIS [None]
  - DRY MOUTH [None]
  - DYSGEUSIA [None]
  - GLOSSITIS [None]
  - MIGRAINE [None]
  - PARAESTHESIA [None]
  - THERAPEUTIC RESPONSE DECREASED [None]
  - TONGUE DISORDER [None]
  - TONGUE ULCERATION [None]
  - WEIGHT DECREASED [None]
  - WEIGHT INCREASED [None]
